FAERS Safety Report 17781064 (Version 1)
Quarter: 2020Q2

REPORT INFORMATION
  Report Type: Spontaneous
  Country: US (occurrence: US)
  Receive Date: 20200513
  Receipt Date: 20200513
  Transmission Date: 20200714
  Serious: No
  Sender: FDA-Public Use
  Company Number: None

PATIENT

DRUGS (1)
  1. SUCCINYLCHOLINE CHLORIDE FOR INJECTION [Suspect]
     Active Substance: SUCCINYLCHOLINE CHLORIDE

REACTIONS (2)
  - Product compounding quality issue [None]
  - Product label issue [None]

NARRATIVE: CASE EVENT DATE: 20200513
